FAERS Safety Report 15187778 (Version 1)
Quarter: 2018Q3

REPORT INFORMATION
  Report Type: Spontaneous
  Country: CR (occurrence: CR)
  Receive Date: 20180724
  Receipt Date: 20180724
  Transmission Date: 20181010
  Serious: Yes (Other)
  Sender: FDA-Public Use
  Company Number: CR-BRISTOL-MYERS SQUIBB COMPANY-BMS-2018-068036

PATIENT
  Age: 70 Year
  Sex: Female

DRUGS (1)
  1. ELIQUIS [Suspect]
     Active Substance: APIXABAN
     Indication: PRODUCT USED FOR UNKNOWN INDICATION
     Dosage: 5 MG, BID
     Route: 065

REACTIONS (2)
  - Drug ineffective [Unknown]
  - Cerebrovascular disorder [Unknown]
